FAERS Safety Report 6057432-8 (Version None)
Quarter: 2009Q1

REPORT INFORMATION
  Report Type: 
  Country: None (occurrence: None)
  Receive Date: 20090129
  Receipt Date: 20090119
  Transmission Date: 20090719
  Serious: Yes (Hospitalization)
  Sender: FDA-Public Use
  Company Number: MX-ELI_LILLY_AND_COMPANY-MX200810005082

PATIENT
  Age: 24 Year
  Sex: Female

DRUGS (5)
  1. HUMALOG MIX 75/25 [Suspect]
     Indication: TYPE 2 DIABETES MELLITUS
     Dosage: 25 IU, EACH MORNING
     Route: 058
     Dates: start: 20081021, end: 20081101
  2. HUMALOG MIX 75/25 [Suspect]
     Dosage: 12 IU, EACH EVENING
     Route: 058
     Dates: start: 20081021, end: 20081101
  3. FOLIC ACID [Concomitant]
     Dosage: 0.4 MG, DAILY (1/D)
     Route: 065
  4. IRON POLYMALTOSE [Concomitant]
     Indication: TYPE 2 DIABETES MELLITUS
     Dosage: UNK UNK, 2/D
     Route: 065
  5. INSULIN [Concomitant]
     Indication: TYPE 2 DIABETES MELLITUS
     Dosage: UNK, UNKNOWN
     Route: 065
     Dates: start: 20081101

REACTIONS (5)
  - ABDOMINAL PAIN [None]
  - AMNIOTIC FLUID VOLUME INCREASED [None]
  - BLOOD GLUCOSE INCREASED [None]
  - DRUG EXPOSURE DURING PREGNANCY [None]
  - HAEMORRHAGE [None]
